FAERS Safety Report 20196340 (Version 1)
Quarter: 2021Q4

REPORT INFORMATION
  Report Type: Spontaneous
  Country: US (occurrence: US)
  Receive Date: 20211216
  Receipt Date: 20211216
  Transmission Date: 20220303
  Serious: Yes (Hospitalization, Other)
  Sender: FDA-Public Use
  Company Number: US-ELI_LILLY_AND_COMPANY-US202112004356

PATIENT
  Sex: Male

DRUGS (1)
  1. HUMALOG MIX75/25 [Suspect]
     Active Substance: INSULIN LISPRO
     Indication: Product used for unknown indication
     Dosage: UNK UNK, UNKNOWN
     Route: 065
     Dates: start: 2006

REACTIONS (9)
  - Gangrene [Not Recovered/Not Resolved]
  - Blister infected [Unknown]
  - Localised infection [Unknown]
  - Poor peripheral circulation [Unknown]
  - Gait inability [Unknown]
  - Blood pressure decreased [Unknown]
  - Depression [Unknown]
  - Blood glucose increased [Unknown]
  - Blood glucose decreased [Unknown]
